FAERS Safety Report 4918559-4 (Version None)
Quarter: 2006Q1

REPORT INFORMATION
  Report Type: 
  Country: None (occurrence: None)
  Receive Date: 20060221
  Receipt Date: 20060221
  Transmission Date: 20060701
  Serious: Yes (Other)
  Sender: FDA-Public Use
  Company Number: None

PATIENT
  Age: 60 Year
  Sex: Female
  Weight: 45.3597 kg

DRUGS (3)
  1. ZETIA [Suspect]
     Indication: BLOOD TRIGLYCERIDES INCREASED
     Dosage: 10MG ONCE DAILY ORALLY
     Route: 048
  2. PREMARIN [Concomitant]
  3. VALIUM [Concomitant]

REACTIONS (11)
  - ABDOMINAL DISTENSION [None]
  - ASTHENIA [None]
  - BONE PAIN [None]
  - CONTUSION [None]
  - DIFFICULTY IN WALKING [None]
  - FATIGUE [None]
  - HYPERAESTHESIA [None]
  - IMPAIRED DRIVING ABILITY [None]
  - OEDEMA PERIPHERAL [None]
  - ONYCHALGIA [None]
  - PAIN [None]
